FAERS Safety Report 24948617 (Version 1)
Quarter: 2025Q1

REPORT INFORMATION
  Report Type: Spontaneous
  Country: PL (occurrence: PL)
  Receive Date: 20250210
  Receipt Date: 20250210
  Transmission Date: 20250408
  Serious: Yes (Life-Threatening)
  Sender: ACCORD
  Company Number: None

PATIENT
  Age: 40 Year
  Sex: Female
  Weight: 76.3 kg

DRUGS (8)
  1. PACLITAXEL [Suspect]
     Active Substance: PACLITAXEL
     Indication: Product used for unknown indication
     Dates: start: 20241126, end: 20241126
  2. RELANIUM [Concomitant]
     Dates: start: 20241126
  3. CORHYDRON [Concomitant]
     Dates: start: 20241126
  4. ONDANSETRON [Concomitant]
     Active Substance: ONDANSETRON
     Dates: start: 20241126
  5. DEXAMETHASONE [Concomitant]
     Active Substance: DEXAMETHASONE
     Dates: start: 20241126
  6. SODIUM CHLORIDE [Concomitant]
     Active Substance: SODIUM CHLORIDE
     Dates: start: 20241126
  7. CLEMASTINE [Concomitant]
     Active Substance: CLEMASTINE
     Dates: start: 20241126
  8. CARBOPLATIN [Concomitant]
     Active Substance: CARBOPLATIN
     Dates: start: 20241126

REACTIONS (4)
  - Oxygen saturation decreased [Recovered/Resolved]
  - Presyncope [Recovered/Resolved]
  - Asthenia [Recovered/Resolved]
  - Lividity [Recovered/Resolved]

NARRATIVE: CASE EVENT DATE: 20241126
